FAERS Safety Report 25232946 (Version 5)
Quarter: 2025Q3

REPORT INFORMATION
  Report Type: Spontaneous
  Country: US (occurrence: US)
  Receive Date: 20250424
  Receipt Date: 20250816
  Transmission Date: 20251021
  Serious: Yes (Other)
  Sender: ALEXION PHARMACEUTICALS
  Company Number: US-AstraZeneca-CH-00854273A

PATIENT
  Age: 75 Year
  Sex: Female
  Weight: 66 kg

DRUGS (13)
  1. FARXIGA [Suspect]
     Active Substance: DAPAGLIFLOZIN PROPANEDIOL
  2. TOPROL XL [Suspect]
     Active Substance: METOPROLOL SUCCINATE
     Route: 065
  3. CARVEDILOL [Concomitant]
     Active Substance: CARVEDILOL
     Route: 065
  4. COREG [Concomitant]
     Active Substance: CARVEDILOL
     Route: 065
  5. ENTRESTO [Concomitant]
     Active Substance: SACUBITRIL\VALSARTAN
     Route: 065
  6. LASIX [Concomitant]
     Active Substance: FUROSEMIDE
     Route: 065
  7. METOPROLOL SUCCINATE [Concomitant]
     Active Substance: METOPROLOL SUCCINATE
     Route: 065
  8. ASPIRIN [Concomitant]
     Active Substance: ASPIRIN
  9. FAMOTIDINE [Concomitant]
     Active Substance: FAMOTIDINE
  10. FUROSEMIDE [Concomitant]
     Active Substance: FUROSEMIDE
  11. HALOPERIDOL [Concomitant]
     Active Substance: HALOPERIDOL
  12. LISINOPRIL [Concomitant]
     Active Substance: LISINOPRIL
  13. VALACYCLOVIR [Concomitant]
     Active Substance: VALACYCLOVIR HYDROCHLORIDE

REACTIONS (18)
  - Stevens-Johnson syndrome [Unknown]
  - Epidermal necrosis [Unknown]
  - Toxic epidermal necrolysis [Unknown]
  - Rash [Unknown]
  - Blister [Unknown]
  - Condition aggravated [Unknown]
  - Thermal burn [Unknown]
  - Skin lesion [Unknown]
  - Pruritus [Unknown]
  - Abdominal pain [Unknown]
  - Purulent discharge [Unknown]
  - Skin disorder [Unknown]
  - Pemphigoid [Unknown]
  - Hyperkeratosis [Unknown]
  - Oral mucosal blistering [Unknown]
  - Keratosis pilaris [Unknown]
  - Lymphocyte count abnormal [Unknown]
  - Inflammation [Unknown]
